FAERS Safety Report 9237114 (Version 1)
Quarter: 2013Q2

REPORT INFORMATION
  Report Type: Spontaneous
  Country: US (occurrence: US)
  Receive Date: 20130417
  Receipt Date: 20130417
  Transmission Date: 20140414
  Serious: Yes (Other)
  Sender: FDA-Public Use
  Company Number: US-BANPHARM-20131105

PATIENT
  Sex: Female

DRUGS (10)
  1. ALEVE LIQUID GELS 220 MG [Suspect]
     Dosage: 2 DF,
     Route: 048
  2. LAMISIL [Suspect]
     Indication: ONYCHOMYCOSIS
     Dates: start: 2010
  3. ALTERIL [Concomitant]
  4. UNISOM [Concomitant]
  5. FEXOFENADINE [Concomitant]
  6. VICODIN [Concomitant]
     Indication: MIGRAINE
  7. MAXALT [Concomitant]
     Indication: MIGRAINE
  8. LAMICTAL [Concomitant]
  9. TYLENOL ARTHRITIS FORMULA [Concomitant]
     Indication: BACK PAIN
  10. TUMS [Concomitant]

REACTIONS (4)
  - Pancreatitis [Unknown]
  - Abdominal pain upper [Unknown]
  - Nausea [Unknown]
  - Retching [Unknown]
